FAERS Safety Report 8374921-1 (Version None)
Quarter: 2012Q2

REPORT INFORMATION
  Report Type: 
  Country: None (occurrence: None)
  Receive Date: 20120521
  Receipt Date: 20120515
  Transmission Date: 20120825
  Serious: Yes (Hospitalization)
  Sender: FDA-Public Use
  Company Number: US-AMGEN-USASP2011068463

PATIENT
  Age: 62 Year
  Sex: Female

DRUGS (5)
  1. NSAID'S [Concomitant]
     Dosage: UNK
  2. ENBREL [Suspect]
     Indication: RHEUMATOID ARTHRITIS
     Dosage: 50 MG, QWK
     Dates: start: 20120307
  3. ENBREL [Suspect]
     Dosage: 50 MG, QWK
     Route: 058
     Dates: start: 20110419
  4. ENBREL [Suspect]
     Dosage: 50 MG, QWK
     Dates: start: 20110501, end: 20111229
  5. ENBREL [Suspect]
     Dosage: 50 MG, QWK
     Dates: start: 20110501

REACTIONS (9)
  - MALAISE [None]
  - DRUG INEFFECTIVE [None]
  - MOBILITY DECREASED [None]
  - PEPTIC ULCER [None]
  - GASTRITIS [None]
  - RENAL MASS [None]
  - RHEUMATOID ARTHRITIS [None]
  - JEJUNITIS [None]
  - RENAL HAEMORRHAGE [None]
